FAERS Safety Report 24972758 (Version 1)
Quarter: 2025Q1

REPORT INFORMATION
  Report Type: Spontaneous
  Country: GB (occurrence: GB)
  Receive Date: 20250215
  Receipt Date: 20250215
  Transmission Date: 20250408
  Serious: Yes (Other)
  Sender: ACCORD
  Company Number: None

PATIENT
  Age: 54 Year
  Sex: Female

DRUGS (17)
  1. MYCOPHENOLATE MOFETIL [Suspect]
     Active Substance: MYCOPHENOLATE MOFETIL
     Indication: Product used for unknown indication
  2. TRAMADOL [Concomitant]
     Active Substance: TRAMADOL
  3. MIRTAZAPINE [Concomitant]
     Active Substance: MIRTAZAPINE
  4. METFORMIN [Concomitant]
     Active Substance: METFORMIN HYDROCHLORIDE
  5. IBUPROFEN [Concomitant]
     Active Substance: IBUPROFEN
  6. FLUCLOXACILLIN [Concomitant]
     Active Substance: FLUCLOXACILLIN
  7. ESOMEPRAZOLE [Concomitant]
     Active Substance: ESOMEPRAZOLE
  8. BECLOMETHASONE DIPROPIONATE [Concomitant]
     Active Substance: BECLOMETHASONE DIPROPIONATE
  9. AMITRIPTYLINE [Concomitant]
     Active Substance: AMITRIPTYLINE
  10. PREDNISOLONE [Concomitant]
     Active Substance: PREDNISOLONE
  11. GABAPENTIN [Concomitant]
     Active Substance: GABAPENTIN
  12. ALBUTEROL [Concomitant]
     Active Substance: ALBUTEROL
  13. DOXYCYCLINE [Concomitant]
     Active Substance: DOXYCYCLINE
  14. BACLOFEN [Concomitant]
     Active Substance: BACLOFEN
  15. CHOLECALCIFEROL [Concomitant]
     Active Substance: CHOLECALCIFEROL
  16. CYCLOSPORINE [Concomitant]
     Active Substance: CYCLOSPORINE
  17. CANDESARTAN [Concomitant]
     Active Substance: CANDESARTAN

REACTIONS (1)
  - Skin ulcer [Unknown]
